FAERS Safety Report 13588250 (Version 2)
Quarter: 2017Q3

REPORT INFORMATION
  Report Type: Spontaneous
  Country: US (occurrence: US)
  Receive Date: 20170528
  Receipt Date: 20170809
  Transmission Date: 20171127
  Serious: No
  Sender: FDA-Public Use
  Company Number: US-ASTRAZENECA-2017SE53474

PATIENT
  Age: 26967 Day
  Sex: Male
  Weight: 52.2 kg

DRUGS (4)
  1. ALBUTEROL. [Concomitant]
     Active Substance: ALBUTEROL
     Indication: HYPOXIA
     Dosage: 2 PUFFS EVERY 4 HOURS AS NEEDED
     Route: 055
  2. ALBUTEROL. [Concomitant]
     Active Substance: ALBUTEROL
     Indication: PLEURAL EFFUSION
     Dosage: 2 PUFFS EVERY 4 HOURS AS NEEDED
     Route: 055
  3. SYMBICORT [Suspect]
     Active Substance: BUDESONIDE\FORMOTEROL FUMARATE DIHYDRATE
     Dosage: 160/4.5MCG, TWO INHALATIONS TWICE DAILY
     Route: 055
     Dates: start: 20170516
  4. ALBUTEROL. [Concomitant]
     Active Substance: ALBUTEROL
     Indication: CARDIAC FIBRILLATION
     Dosage: 2 PUFFS EVERY 4 HOURS AS NEEDED
     Route: 055

REACTIONS (3)
  - Device issue [Unknown]
  - Wrong technique in device usage process [Unknown]
  - Oxygen saturation decreased [Unknown]

NARRATIVE: CASE EVENT DATE: 20170516
